FAERS Safety Report 7942505-2 (Version None)
Quarter: 2011Q4

REPORT INFORMATION
  Report Type: 
  Country: None (occurrence: None)
  Receive Date: 20111128
  Receipt Date: 20111121
  Transmission Date: 20120403
  Serious: Yes (Hospitalization)
  Sender: FDA-Public Use
  Company Number: DE-GLAXOSMITHKLINE-B0756104A

PATIENT
  Sex: Female
  Weight: 73.7 kg

DRUGS (2)
  1. BLINDED STUDY MEDICATION [Suspect]
     Indication: OVARIAN CANCER
     Route: 048
     Dates: start: 20110919
  2. TOPOTECAN [Suspect]
     Indication: OVARIAN CANCER
     Dosage: 1.25MG PER DAY
     Route: 042
     Dates: start: 20110912

REACTIONS (3)
  - FATIGUE [None]
  - WEIGHT DECREASED [None]
  - LEUKOPENIA [None]
